FAERS Safety Report 25548488 (Version 3)
Quarter: 2025Q3

REPORT INFORMATION
  Report Type: Report from Study
  Country: US (occurrence: US)
  Receive Date: 20250714
  Receipt Date: 20250807
  Transmission Date: 20251020
  Serious: Yes (Other)
  Sender: ACADIA PHARMACEUTICALS
  Company Number: US-ACADIA PHARMACEUTICALS INC.-ACA-2025-PIM-008166

PATIENT
  Age: 88 Year
  Sex: Female

DRUGS (32)
  1. NUPLAZID [Suspect]
     Active Substance: PIMAVANSERIN TARTRATE
     Indication: Parkinson^s disease
     Dosage: 10 MILLIGRAM, DAILY
     Route: 048
     Dates: start: 20250603
  2. LINZESS [Concomitant]
     Active Substance: LINACLOTIDE
     Dosage: 1 CAPSULE BY MOUTH DAILY
     Route: 048
     Dates: start: 20250717, end: 20250721
  3. OCEAN SALINE NASAL SPRAY [Concomitant]
     Active Substance: SODIUM CHLORIDE
     Indication: Nasal congestion
     Route: 045
     Dates: start: 20250710
  4. PROTONIX [Concomitant]
     Active Substance: PANTOPRAZOLE SODIUM
     Dosage: TABLET BY MOUTH DAILY FOR 7 DAYS
     Route: 048
     Dates: start: 20250710, end: 20250717
  5. REMERON [Concomitant]
     Active Substance: MIRTAZAPINE
     Dosage: TAKE 1 TABLET BY MOUTH EVERY DAY AT NIGHT
     Route: 048
     Dates: start: 20250701
  6. KLONOPIN [Concomitant]
     Active Substance: CLONAZEPAM
     Indication: Anxiety
     Dosage: 1 DOSAGE FORM, TID
     Route: 048
     Dates: start: 20250701
  7. MEGACE [Concomitant]
     Active Substance: MEGESTROL ACETATE
     Dosage: TAKE 1 TABLET BY MOUTH DAILY.
     Route: 048
     Dates: start: 20250701
  8. CALCIUM [Concomitant]
     Active Substance: CALCIUM
     Dosage: TAKE 1,200 MG BY MOUTH DAILY, PATIENT REPORTED MEDICATION
     Route: 048
  9. BACTROBAN [Concomitant]
     Active Substance: MUPIROCIN CALCIUM
     Dosage: APPLY ON THE SKIN TWICE A DAY TO AFFECTED AREA
     Dates: start: 20250502
  10. SINEMET [Concomitant]
     Active Substance: CARBIDOPA\LEVODOPA
     Dosage: TAKE 1 TABLET BY MOUTH IN THE MORNING AND 1TABLET AT NOON AND 1 TABLET IN THE EVENING (25-100 MG PER
     Route: 048
  11. SINEMET [Concomitant]
     Active Substance: CARBIDOPA\LEVODOPA
     Dates: start: 20250210
  12. CYTOMEL [Concomitant]
     Active Substance: LIOTHYRONINE SODIUM
     Dosage: TAKE 1 TABLET BY MOUTH EVERY DAY BEFORE BREAKFAST
     Route: 048
     Dates: start: 20250429
  13. THERAPEUTIC-M [Concomitant]
     Route: 048
     Dates: start: 20250408
  14. SODIUM CHLORIDE [Concomitant]
     Active Substance: SODIUM CHLORIDE
     Dosage: TAKE 1 TABLET BY MOUTH TWICE A DAY IN THE MORNING AND IN THE EVENING
     Route: 048
     Dates: start: 20250329
  15. FOLATE SODIUM [Concomitant]
     Active Substance: FOLATE SODIUM
     Dosage: TAKE 1 TABLET BY MOUTH EVERY DAY
     Route: 048
     Dates: start: 20250319
  16. LEVOTHYROXINE [Concomitant]
     Active Substance: LEVOTHYROXINE
     Dosage: TAKE 1 TABLET BY MOUTH DAILY.
     Route: 048
     Dates: start: 20250220
  17. PRED FORTE [Concomitant]
     Active Substance: PREDNISOLONE ACETATE
     Route: 047
     Dates: start: 20250207
  18. REFRESH CELLUVISC [Concomitant]
     Active Substance: CARBOXYMETHYLCELLULOSE SODIUM
     Dosage: PLACE 4 DROPS INTO BOTH EYES AT BEDTIME
     Route: 047
  19. CRESTOR [Concomitant]
     Active Substance: ROSUVASTATIN CALCIUM
     Dosage: TAKE 1 TABLET BY MOUTH EVERY DAY
     Route: 048
     Dates: start: 20250115, end: 20250721
  20. MYRBETRIQ [Concomitant]
     Active Substance: MIRABEGRON
     Dosage: TAKE 1 TABLET EVERY DAY
     Dates: start: 20241223
  21. COMTAN [Concomitant]
     Active Substance: ENTACAPONE
     Route: 048
  22. VITAMIN D2 [Concomitant]
     Active Substance: ERGOCALCIFEROL
     Route: 048
  23. SOOTHE XP [Concomitant]
     Active Substance: LIGHT MINERAL OIL\MINERAL OIL
     Route: 047
  24. CARBOXYMETHYLCELLULOSE [Concomitant]
     Active Substance: CARBOXYMETHYLCELLULOSE
     Route: 047
  25. GLYCERIN [Concomitant]
     Active Substance: GLYCERIN
     Route: 047
  26. RESTASIS [Concomitant]
     Active Substance: CYCLOSPORINE
     Dosage: EVERY 12 HOURS.
     Route: 047
  27. COLACE [Concomitant]
     Active Substance: DOCUSATE SODIUM
     Dosage: TTAKE 1 CAPSULE BY MOUTH EVERY DAY, HOLD IF LOOSE BOWEL MOVEMENTS
     Route: 048
     Dates: start: 20230524
  28. TIMOPTIC [Concomitant]
     Active Substance: TIMOLOL MALEATE
     Dates: start: 20230706
  29. CHOLECALCIFEROL [Concomitant]
     Active Substance: CHOLECALCIFEROL
     Dosage: TAKE 50 MCG (2000 UNIT) BY MOUTH DAILY.
     Route: 048
  30. FLONASE [Concomitant]
     Active Substance: FLUTICASONE PROPIONATE
     Dosage: SPRAY 1 SPRAY IN EACH NOSTRIL DAILY.
     Route: 045
  31. BENTYL [Concomitant]
     Active Substance: DICYCLOMINE HYDROCHLORIDE
  32. FOSAMAX [Concomitant]
     Active Substance: ALENDRONATE SODIUM
     Route: 048
     Dates: start: 20250529

REACTIONS (12)
  - Arteriosclerosis coronary artery [Unknown]
  - Bipolar I disorder [Unknown]
  - Compression fracture [Unknown]
  - Abdominal pain upper [Not Recovered/Not Resolved]
  - Decreased appetite [Unknown]
  - Spinal deformity [Unknown]
  - Adnexa uteri cyst [Unknown]
  - Renal cyst [Unknown]
  - Pancreatic cyst [Unknown]
  - Abdominal pain lower [Unknown]
  - Irritable bowel syndrome [Unknown]
  - Weight decreased [Unknown]

NARRATIVE: CASE EVENT DATE: 20250623
